FAERS Safety Report 9554117 (Version 1)
Quarter: 2013Q3

REPORT INFORMATION
  Report Type: Spontaneous
  Country: TW (occurrence: TW)
  Receive Date: 20130925
  Receipt Date: 20130925
  Transmission Date: 20140515
  Serious: Yes (Death)
  Sender: FDA-Public Use
  Company Number: TW-BAYER-2013-112646

PATIENT
  Age: 62 Year
  Sex: Female

DRUGS (4)
  1. TRIMETHOPRIM-SULFAMETHOXAZOLE [Suspect]
     Indication: MENINGITIS STAPHYLOCOCCAL
     Dosage: 3.6/0.72 G/D
     Route: 042
     Dates: start: 2008, end: 2008
  2. TRIMETHOPRIM-SULFAMETHOXAZOLE [Suspect]
     Indication: STENOTROPHOMONAS INFECTION
  3. MOXIFLOXACIN IV [Suspect]
     Indication: MENINGITIS STAPHYLOCOCCAL
     Dosage: 0.4 G/D
     Route: 042
     Dates: start: 2008, end: 2008
  4. MOXIFLOXACIN IV [Suspect]
     Indication: STENOTROPHOMONAS INFECTION

REACTIONS (2)
  - Stenotrophomonas infection [Fatal]
  - Pathogen resistance [Fatal]
